FAERS Safety Report 12629985 (Version 2)
Quarter: 2016Q4

REPORT INFORMATION
  Report Type: Spontaneous
  Country: US (occurrence: US)
  Receive Date: 20160808
  Receipt Date: 20161031
  Transmission Date: 20170207
  Serious: Yes (Hospitalization)
  Sender: FDA-Public Use
  Company Number: US-PFIZER INC-2016375185

PATIENT
  Age: 76 Year
  Sex: Female

DRUGS (31)
  1. IBRANCE [Suspect]
     Active Substance: PALBOCICLIB
     Dosage: 75 MG, 1X/DAY
     Dates: start: 20150415
  2. VITAMIN E [Concomitant]
     Active Substance: .ALPHA.-TOCOPHEROL
     Dosage: UNK UNK, DAILY (400UNITS ORAL DAILY)
     Route: 048
  3. AMLODIPINE BESYLATE. [Concomitant]
     Active Substance: AMLODIPINE BESYLATE
     Dosage: 5 MG, DAILY
     Route: 048
  4. SYMBICORT [Concomitant]
     Active Substance: BUDESONIDE\FORMOTEROL FUMARATE DIHYDRATE
     Dosage: UNK (BUDESONIDE 160MCG/FORMOTEROL FUMARATE  4.5MCG )
  5. SYMBICORT [Concomitant]
     Active Substance: BUDESONIDE\FORMOTEROL FUMARATE DIHYDRATE
     Dosage: UNK (BUDESONIDE 80MCG/FORMOTEROL FUMARATE  4.5MCG )
     Route: 048
  6. SYMBICORT [Concomitant]
     Active Substance: BUDESONIDE\FORMOTEROL FUMARATE DIHYDRATE
     Dosage: UNK (BUDESONIDE 80MCG/FORMOTEROL FUMARATE  4.5MCG ) (10.2GM - 2INH)
     Route: 048
  7. FASLODEX [Concomitant]
     Active Substance: FULVESTRANT
     Dosage: 250 MG, UNK ((FASLODEX) 250 MG/5 ML)
     Route: 030
  8. LEVOTHYROXINE SODIUM. [Concomitant]
     Active Substance: LEVOTHYROXINE SODIUM
     Dosage: 100 UG, DAILY
     Route: 048
  9. TURMERIC [Concomitant]
     Active Substance: TURMERIC
     Dosage: 0.3 MG, DAILY
     Route: 048
  10. MIRALAX [Concomitant]
     Active Substance: POLYETHYLENE GLYCOL 3350
     Indication: ABDOMINAL DISCOMFORT
     Dosage: 17 G, DAILY
     Route: 048
  11. ZOMETA [Concomitant]
     Active Substance: ZOLEDRONIC ACID
     Dosage: 4 MG, MONTHLY (4 MG/5 ML)
     Route: 042
  12. LETROZOLE. [Suspect]
     Active Substance: LETROZOLE
     Indication: BREAST CANCER
     Dosage: 2.5 MG, 1X/DAY
     Route: 048
     Dates: start: 20150415
  13. BACID [Concomitant]
     Active Substance: LACTOBACILLUS ACIDOPHILUS
     Dosage: 250 MG, 2X/DAY
     Route: 048
  14. IBRANCE [Suspect]
     Active Substance: PALBOCICLIB
     Indication: BREAST CANCER FEMALE
     Dosage: 75 MG, CYCLIC (75 MG DAILY FOR 14 DAYS ON AND 7 DAYS OFF)
  15. MELATONIN [Concomitant]
     Active Substance: MELATONIN
     Dosage: 10 MG, 1X/DAY (BEDTIME)
     Route: 048
  16. PRAVASTATIN SODIUM. [Concomitant]
     Active Substance: PRAVASTATIN SODIUM
     Dosage: 40 MG, DAILY
     Route: 048
  17. FEMARA [Concomitant]
     Active Substance: LETROZOLE
     Dosage: 2.5 MG, DAILY
     Route: 048
  18. VOLTAREN [Concomitant]
     Active Substance: DICLOFENAC SODIUM
     Dosage: 100 G, AS NEEDED
     Route: 061
  19. SIMETHICONE (DIMETHICONE) [Concomitant]
     Active Substance: DIMETHICONE
     Dosage: 125 MG, AS NEEDED
     Route: 048
  20. NORCO [Concomitant]
     Active Substance: ACETAMINOPHEN\HYDROCODONE BITARTRATE
     Dosage: AS NEEDED (HYDROCODONE 5MG/ACETAMINOPHEN 325MG), (0.5 -1 EACH ORAL Q6PRN)
     Route: 048
  21. PANTOPRAZOLE SODIUM. [Concomitant]
     Active Substance: PANTOPRAZOLE SODIUM
     Indication: ABDOMINAL DISCOMFORT
     Dosage: 40 MG, DAILY
     Route: 048
  22. MAG-OXIDE [Concomitant]
     Dosage: 400 MG, DAILY
     Route: 048
  23. VITAMIN D3 [Concomitant]
     Active Substance: CHOLECALCIFEROL
     Dosage: 2,000 UNIT, DAILY
     Route: 048
  24. SPIRIVA RESPIMAT [Concomitant]
     Active Substance: TIOTROPIUM BROMIDE
     Dosage: 4 G, 1X/DAY (BEDTIME)
     Route: 055
  25. BALANCE B-50 [Concomitant]
     Dosage: DAILY (1 EACH ORAL DAILY)
     Route: 048
  26. NITROSTAT [Concomitant]
     Active Substance: NITROGLYCERIN
     Dosage: 0.4 MG, AS NEEDED (PRN UP TO 3 TIMES)
     Route: 060
  27. EFFEXOR XR [Concomitant]
     Active Substance: VENLAFAXINE HYDROCHLORIDE
     Dosage: 150 MG, DAILY
     Route: 048
  28. AMBIEN [Concomitant]
     Active Substance: ZOLPIDEM TARTRATE
     Indication: SLEEP DISORDER
     Dosage: 5 MG, AS NEEDED (1 TAB ORAL QHS PRN SLEEP)
     Route: 048
  29. MILK OF MAGNESIA [Concomitant]
     Active Substance: MAGNESIUM HYDROXIDE
     Dosage: 30 ML, AS NEEDED (EVERY 4-6 HOURS)
     Route: 048
  30. FISH OIL [Concomitant]
     Active Substance: FISH OIL
     Dosage: 1000 MG, DAILY (1 EACH)
     Route: 048
  31. VENTOLIN HFA [Concomitant]
     Active Substance: ALBUTEROL SULFATE
     Dosage: AS NEEDED (2 PUFF INHALATION Q6H)

REACTIONS (3)
  - Dyspnoea [Not Recovered/Not Resolved]
  - Pain in extremity [Not Recovered/Not Resolved]
  - Musculoskeletal stiffness [Not Recovered/Not Resolved]

NARRATIVE: CASE EVENT DATE: 2015
